FAERS Safety Report 9794674 (Version 3)
Quarter: 2015Q1

REPORT INFORMATION
  Report Type: Spontaneous
  Country: FR (occurrence: FR)
  Receive Date: 20140102
  Receipt Date: 20150206
  Transmission Date: 20150721
  Serious: Yes (Hospitalization)
  Sender: FDA-Public Use
  Company Number: FR-ALLERGAN-1320208US

PATIENT
  Age: 25 Year
  Sex: Female

DRUGS (6)
  1. BOTOX [Suspect]
     Active Substance: ONABOTULINUMTOXINA
     Indication: URINARY INCONTINENCE
     Dosage: 200 UNK, UNK
  2. BOTOX [Suspect]
     Active Substance: ONABOTULINUMTOXINA
     Dosage: 200 UNITS, SINGLE
  3. BOTOX [Suspect]
     Active Substance: ONABOTULINUMTOXINA
     Dosage: 200 UNK, UNK
  4. BOTOX [Suspect]
     Active Substance: ONABOTULINUMTOXINA
     Indication: NEUROGENIC BLADDER
     Dosage: 300 UNITS, SINGLE
     Dates: start: 20131011, end: 20131011
  5. BOTOX [Suspect]
     Active Substance: ONABOTULINUMTOXINA
     Dosage: 100 UNK, UNK
  6. LYRICA [Concomitant]
     Active Substance: PREGABALIN

REACTIONS (3)
  - Neuromyopathy [Recovered/Resolved]
  - Fatigue [Recovered/Resolved]
  - Botulism [Recovered/Resolved]

NARRATIVE: CASE EVENT DATE: 20131025
